FAERS Safety Report 7102007-2 (Version None)
Quarter: 2010Q4

REPORT INFORMATION
  Report Type: 
  Country: None (occurrence: None)
  Receive Date: 20101115
  Receipt Date: 20101108
  Transmission Date: 20110411
  Serious: Yes (Other)
  Sender: FDA-Public Use
  Company Number: US-ROCHE-707376

PATIENT
  Sex: Male
  Weight: 71.7 kg

DRUGS (2)
  1. PEGASYS [Suspect]
     Indication: HEPATITIS C
     Dosage: FORM: INJECTION
     Route: 058
     Dates: start: 20091001, end: 20100501
  2. COPEGUS [Suspect]
     Indication: HEPATITIS C
     Route: 048
     Dates: start: 20091001, end: 20100501

REACTIONS (11)
  - BEDRIDDEN [None]
  - BLINDNESS UNILATERAL [None]
  - BONE PAIN [None]
  - CEREBROVASCULAR ACCIDENT [None]
  - COUGH [None]
  - EYE HAEMORRHAGE [None]
  - INFLUENZA LIKE ILLNESS [None]
  - PAIN [None]
  - PROCEDURAL COMPLICATION [None]
  - VASCULAR RUPTURE [None]
  - VISION BLURRED [None]
